FAERS Safety Report 19958165 (Version 1)
Quarter: 2021Q4

REPORT INFORMATION
  Report Type: Report from Study
  Country: US (occurrence: US)
  Receive Date: 20211015
  Receipt Date: 20211015
  Transmission Date: 20220303
  Serious: Yes (Hospitalization, Other)
  Sender: FDA-Public Use
  Company Number: US-JNJFOC-20210518639

PATIENT
  Age: 3 Decade
  Sex: Female

DRUGS (6)
  1. SELEXIPAG [Suspect]
     Active Substance: SELEXIPAG
     Indication: Pulmonary arterial hypertension
     Route: 048
     Dates: start: 20201118
  2. SELEXIPAG [Suspect]
     Active Substance: SELEXIPAG
     Route: 048
     Dates: start: 20200403
  3. SELEXIPAG [Suspect]
     Active Substance: SELEXIPAG
     Dosage: 400 MCG AND 200 MCG IN MORNING AND AT NIGHT
     Route: 048
     Dates: start: 2020, end: 202105
  4. SELEXIPAG [Suspect]
     Active Substance: SELEXIPAG
     Route: 048
  5. MACITENTAN [Suspect]
     Active Substance: MACITENTAN
     Indication: Pulmonary arterial hypertension
     Route: 048
     Dates: start: 20210320
  6. MACITENTAN [Suspect]
     Active Substance: MACITENTAN
     Route: 048
     Dates: start: 2014

REACTIONS (19)
  - Hospitalisation [Unknown]
  - Pulmonary oedema [Not Recovered/Not Resolved]
  - Pneumonia [Recovering/Resolving]
  - Haematemesis [Recovered/Resolved]
  - Arthralgia [Unknown]
  - Joint swelling [Not Recovered/Not Resolved]
  - Peripheral swelling [Not Recovered/Not Resolved]
  - Scoliosis [Unknown]
  - Dyspnoea [Unknown]
  - Vomiting [Unknown]
  - Pyrexia [Unknown]
  - General physical health deterioration [Unknown]
  - Headache [Recovered/Resolved]
  - Delusion [Recovered/Resolved]
  - Memory impairment [Recovered/Resolved]
  - Asthenia [Recovered/Resolved]
  - Fatigue [Recovered/Resolved]
  - Eating disorder [Recovered/Resolved]
  - Adverse drug reaction [Recovered/Resolved]

NARRATIVE: CASE EVENT DATE: 20200101
